FAERS Safety Report 5299756-8 (Version None)
Quarter: 2007Q2

REPORT INFORMATION
  Report Type: 
  Country: None (occurrence: None)
  Receive Date: 20070410
  Receipt Date: 20070327
  Transmission Date: 20071010
  Serious: Yes (Other)
  Sender: FDA-Public Use
  Company Number: 2007-00811

PATIENT
  Age: 40 Year
  Sex: Male

DRUGS (4)
  1. VELCADE [Suspect]
     Indication: MULTIPLE MYELOMA
     Dosage: SEE IMAGE
  2. DECADRON [Concomitant]
  3. DIMORF (MORPHINE SULFATE) [Concomitant]
  4. AMITRIPTYLINE HCL [Concomitant]

REACTIONS (4)
  - ABDOMINAL PAIN UPPER [None]
  - OEDEMA PERIPHERAL [None]
  - PARAESTHESIA [None]
  - PERIORBITAL HAEMATOMA [None]
